FAERS Safety Report 10748367 (Version 1)
Quarter: 2015Q1

REPORT INFORMATION
  Report Type: Report from Study
  Country: CA (occurrence: None)
  Receive Date: 20150127
  Receipt Date: 20150127
  Transmission Date: 20150721
  Serious: No
  Sender: FDA-Public Use
  Company Number: 2014FE02459

PATIENT
  Age: 72 Year
  Sex: Male

DRUGS (4)
  1. TYLENOL /00020001/ (PARACETAMOL) [Concomitant]
  2. HYDROCHLOROTHIAZIDE. [Concomitant]
     Active Substance: HYDROCHLOROTHIAZIDE
  3. FIRMAGON [Suspect]
     Active Substance: DEGARELIX ACETATE
     Indication: PROSTATE CANCER
     Dosage: FORMULATION
     Route: 058
     Dates: start: 20140607
  4. MS CONTIN (MORPHINE SULFATE) [Concomitant]

REACTIONS (8)
  - Pain in extremity [None]
  - Weight bearing difficulty [None]
  - Lethargy [None]
  - Tremor [None]
  - Peripheral swelling [None]
  - Mobility decreased [None]
  - Back pain [None]
  - Joint swelling [None]

NARRATIVE: CASE EVENT DATE: 201408
